FAERS Safety Report 15578609 (Version 1)
Quarter: 2018Q4

REPORT INFORMATION
  Report Type: Spontaneous
  Country: US (occurrence: US)
  Receive Date: 20181102
  Receipt Date: 20181102
  Transmission Date: 20190205
  Serious: Yes (Hospitalization, Other)
  Sender: FDA-Public Use
  Company Number: US-ELI_LILLY_AND_COMPANY-US201810013791

PATIENT
  Age: 78 Year
  Sex: Male

DRUGS (2)
  1. ALIMTA [Suspect]
     Active Substance: PEMETREXED DISODIUM
     Indication: NON-SMALL CELL LUNG CANCER
     Dosage: 1.050 MG, UNKNOWN
     Route: 065
     Dates: start: 20161213
  2. CARBOPLATIN. [Suspect]
     Active Substance: CARBOPLATIN
     Indication: NON-SMALL CELL LUNG CANCER
     Dosage: UNK, UNKNOWN
     Route: 065
     Dates: start: 20161213

REACTIONS (7)
  - Malignant neoplasm progression [Unknown]
  - Pancytopenia [Unknown]
  - Malnutrition [Unknown]
  - Fatigue [Unknown]
  - Weight decreased [Unknown]
  - Toxicity to various agents [Unknown]
  - Anaemia [Unknown]

NARRATIVE: CASE EVENT DATE: 201702
